FAERS Safety Report 9478239 (Version 1)
Quarter: 2013Q3

REPORT INFORMATION
  Report Type: Spontaneous
  Country: US (occurrence: US)
  Receive Date: 20130827
  Receipt Date: 20130827
  Transmission Date: 20140515
  Serious: No
  Sender: FDA-Public Use
  Company Number: US-009507513-1308USA011401

PATIENT
  Sex: 0

DRUGS (1)
  1. DR. SCHOLLS CALLUS REMOVERS [Suspect]
     Indication: HYPERKERATOSIS
     Dosage: 4 DF, UNKNOWN
     Route: 061

REACTIONS (1)
  - Drug ineffective [Unknown]
